FAERS Safety Report 6771509-0 (Version None)
Quarter: 2010Q2

REPORT INFORMATION
  Report Type: 
  Country: None (occurrence: None)
  Receive Date: 20100616
  Receipt Date: 20100609
  Transmission Date: 20101027
  Serious: Yes (Hospitalization)
  Sender: FDA-Public Use
  Company Number: IT-ROCHE-708384

PATIENT
  Sex: Male

DRUGS (2)
  1. AVASTIN [Suspect]
     Dosage: FREQUENCY: CYCLE
     Route: 042
     Dates: start: 20100306, end: 20100421
  2. ROFERON-A [Concomitant]
     Dosage: FREQUENCY: UNKNOWN
     Route: 058
     Dates: start: 20100306, end: 20100421

REACTIONS (2)
  - CONFUSIONAL STATE [None]
  - HYPERTENSION [None]
